FAERS Safety Report 22157794 (Version 2)
Quarter: 2023Q2

REPORT INFORMATION
  Report Type: Spontaneous
  Country: JP (occurrence: JP)
  Receive Date: 20230330
  Receipt Date: 20230502
  Transmission Date: 20230722
  Serious: Yes (Other)
  Sender: FDA-Public Use
  Company Number: JP-MLMSERVICE-20230320-4172997-1-00

PATIENT
  Age: 72 Year
  Sex: Female

DRUGS (6)
  1. DEXAMETHASONE [Suspect]
     Active Substance: DEXAMETHASONE
     Indication: COVID-19
     Route: 065
  2. TOCILIZUMAB [Suspect]
     Active Substance: TOCILIZUMAB
     Indication: COVID-19
     Dosage: ON FOURTH DAY, A SINGLE DOSE WAS ADMINISTERED
     Route: 065
  3. REMDESIVIR [Concomitant]
     Active Substance: REMDESIVIR
     Indication: COVID-19
     Dosage: INITIALLY
  4. REMDESIVIR [Concomitant]
     Active Substance: REMDESIVIR
  5. OXYGEN [Concomitant]
     Active Substance: OXYGEN
     Indication: Oxygen therapy
     Dosage: OXYGEN DEMAND WAS INITIALLY 4 L/MIN ON THE OXIMIZER, ADMINISTERED BY HIGH FLOW NASAL CANNULA
     Route: 045
  6. OXYGEN [Concomitant]
     Active Substance: OXYGEN
     Indication: COVID-19
     Dosage: OXYGEN DEMAND INCREASED DURING NIGHT ON FIRST DAY, ADMINISTERED BY HIGH FLOW NASAL CANNULA
     Route: 045

REACTIONS (3)
  - Meningitis pneumococcal [Recovered/Resolved]
  - Meningitis bacterial [Recovered/Resolved]
  - Klebsiella infection [Recovered/Resolved]
